FAERS Safety Report 23028193 (Version 1)
Quarter: 2023Q4

REPORT INFORMATION
  Report Type: Spontaneous
  Country: US (occurrence: US)
  Receive Date: 20231004
  Receipt Date: 20231004
  Transmission Date: 20240109
  Serious: Yes (Hospitalization)
  Sender: FDA-Public Use
  Company Number: US-TEVA-2023-US-2930613

PATIENT
  Age: 63 Year
  Sex: Female

DRUGS (2)
  1. VALPROATE SODIUM [Suspect]
     Active Substance: VALPROATE SODIUM
     Indication: Schizoaffective disorder bipolar type
     Dosage: 1000 MILLIGRAM DAILY;
     Route: 065
  2. OLANZAPINE [Concomitant]
     Active Substance: OLANZAPINE
     Indication: Schizoaffective disorder bipolar type
     Route: 065

REACTIONS (2)
  - Hyponatraemia [Recovering/Resolving]
  - Hallucination, visual [Recovering/Resolving]
